FAERS Safety Report 9385060 (Version 1)
Quarter: 2013Q3

REPORT INFORMATION
  Report Type: Spontaneous
  Country: GB (occurrence: None)
  Receive Date: 20130701
  Receipt Date: 20130701
  Transmission Date: 20140515
  Serious: Yes (Hospitalization)
  Sender: FDA-Public Use
  Company Number: GB-1198995

PATIENT
  Age: 46 Year
  Sex: Female
  Weight: 40 kg

DRUGS (4)
  1. CILOXAN [Suspect]
     Route: 050
     Dates: start: 20130602
  2. AMLODIPINE [Concomitant]
  3. LANSOPRAZOLE [Concomitant]
  4. PIZOTIFEN [Concomitant]

REACTIONS (2)
  - Urticaria [None]
  - Maternal exposure timing unspecified [None]
